FAERS Safety Report 12633866 (Version 1)
Quarter: 2016Q3

REPORT INFORMATION
  Report Type: Other
  Country: IT (occurrence: IT)
  Receive Date: 20160809
  Receipt Date: 20160809
  Transmission Date: 20161109
  Serious: Yes (Other)
  Sender: FDA-Public Use
  Company Number: IT-ASTELLAS-2016US030146

PATIENT
  Age: 71 Year
  Sex: Male

DRUGS (2)
  1. TRIPTORELINE ACETAAT               /00975901/ [Concomitant]
     Indication: PROSTATE CANCER STAGE IV
     Route: 030
  2. XTANDI [Suspect]
     Active Substance: ENZALUTAMIDE
     Indication: PROSTATE CANCER STAGE IV
     Route: 048
     Dates: start: 20160604, end: 20160629

REACTIONS (1)
  - Supraventricular tachycardia [Recovered/Resolved with Sequelae]

NARRATIVE: CASE EVENT DATE: 20160629
